FAERS Safety Report 7319159-1 (Version None)
Quarter: 2011Q1

REPORT INFORMATION
  Report Type: 
  Country: None (occurrence: None)
  Receive Date: 20110228
  Receipt Date: 20110217
  Transmission Date: 20110831
  Serious: Yes (Other)
  Sender: FDA-Public Use
  Company Number: PHHY2011US01222

PATIENT
  Sex: Female

DRUGS (3)
  1. GILENYA [Suspect]
     Indication: RELAPSING-REMITTING MULTIPLE SCLEROSIS
     Dosage: 0.5 MG, DAILY
     Route: 048
     Dates: start: 20110105, end: 20110119
  2. CELEBREX [Concomitant]
     Indication: ARTHRITIS
     Dosage: 200 MG, BID
     Route: 048
     Dates: start: 20090101
  3. GILENYA [Suspect]
     Dosage: 0.5 MG, DAILY
     Route: 048
     Dates: start: 20110131

REACTIONS (8)
  - NIPPLE DISORDER [None]
  - GROIN ABSCESS [None]
  - SKIN DISORDER [None]
  - URTICARIA [None]
  - GAIT DISTURBANCE [None]
  - HEADACHE [None]
  - SUBCUTANEOUS ABSCESS [None]
  - ALOPECIA [None]
